FAERS Safety Report 8274923-X (Version None)
Quarter: 2012Q1

REPORT INFORMATION
  Report Type: 
  Country: None (occurrence: None)
  Receive Date: 20120309
  Receipt Date: 20111130
  Transmission Date: 20120608
  Serious: Yes (Hospitalization)
  Sender: FDA-Public Use
  Company Number: TH-2012-00012

PATIENT
  Sex: Male

DRUGS (2)
  1. EGRIFTA [Suspect]
     Indication: PRODUCT USED FOR UNKNOWN INDICATION
     Dates: start: 20111025, end: 20111101
  2. INSULIN [Concomitant]

REACTIONS (2)
  - FOAMING AT MOUTH [None]
  - DIABETES MELLITUS [None]
